FAERS Safety Report 15470155 (Version 2)
Quarter: 2020Q4

REPORT INFORMATION
  Report Type: Report from Study
  Country: IT (occurrence: IT)
  Receive Date: 20181005
  Receipt Date: 20201015
  Transmission Date: 20210113
  Serious: Yes (Other)
  Sender: FDA-Public Use
  Company Number: IT-TEVA-2018-IT-961241

PATIENT
  Age: 68 Year
  Sex: Female

DRUGS (8)
  1. PANTOPRAZOLE [Concomitant]
     Active Substance: PANTOPRAZOLE
  2. RIOPAN 80 MG/ML GEL ORALE [Concomitant]
  3. CALCIO LEVOFOLINATO TEVA 175 MG POLVERE PER SOLUZIONE PER INFUSIONE [Suspect]
     Active Substance: LEVOLEUCOVORIN CALCIUM
     Indication: SMALL INTESTINE CARCINOMA
     Route: 042
     Dates: start: 20180502, end: 20180912
  4. OXALIPLATINO KABI 5 MG/ML CONCENTRATO PER SOLUZIONE PER INFUSIONE [Suspect]
     Active Substance: OXALIPLATIN
     Indication: SMALL INTESTINE CARCINOMA
     Route: 042
     Dates: start: 20180502, end: 20180912
  5. URSODEOXYCHOLIC ACID [Concomitant]
     Active Substance: URSODIOL
  6. FLUOROURACIL. [Concomitant]
     Active Substance: FLUOROURACIL
  7. TAVOR (LORAZEPAM) [Concomitant]
     Active Substance: LORAZEPAM
  8. METFORMIN [Concomitant]
     Active Substance: METFORMIN HYDROCHLORIDE

REACTIONS (2)
  - Rash [Recovering/Resolving]
  - Oedema peripheral [Recovering/Resolving]

NARRATIVE: CASE EVENT DATE: 20180912
